FAERS Safety Report 15861307 (Version 1)
Quarter: 2019Q1

REPORT INFORMATION
  Report Type: Spontaneous
  Country: FR (occurrence: FR)
  Receive Date: 20190124
  Receipt Date: 20190124
  Transmission Date: 20190417
  Serious: Yes (Other)
  Sender: FDA-Public Use
  Company Number: FR-CELLTRION INC.-2019FR017946

PATIENT

DRUGS (6)
  1. TENOFOVIR [Suspect]
     Active Substance: TENOFOVIR
     Indication: HIV INFECTION
     Dosage: PRIOR MCNS DIAGNOSIS. AS A PART OF HIGHLY ACTIVE ANTIRETROVIRAL THERAPY (HAART) REGIMEN.
     Route: 065
  2. RITUXIMAB (UNKNOWN) [Suspect]
     Active Substance: RITUXIMAB
     Indication: NEPHROTIC SYNDROME
     Dosage: UNK
     Route: 065
  3. EMTRICITABINE [Concomitant]
     Active Substance: EMTRICITABINE
     Indication: HIV INFECTION
     Dosage: PRIOR MCNS DIAGNOSIS. AS A PART OF HIGHLY ACTIVE ANTIRETROVIRAL THERAPY (HAART) REGIMEN.
     Route: 065
  4. ETRAVIRINE [Concomitant]
     Active Substance: ETRAVIRINE
     Indication: HIV INFECTION
     Dosage: THERAPY CONTINUED. AS A PART OF HIGHLY ACTIVE ANTIRETROVIRAL THERAPY (HAART) REGIMEN.
     Route: 065
  5. LAMIVUDINE. [Concomitant]
     Active Substance: LAMIVUDINE
     Indication: HIV INFECTION
     Dosage: ADDITIONAL INFO: POST MCNS DIAGNOSIS
     Route: 065
  6. ABACAVIR. [Concomitant]
     Active Substance: ABACAVIR
     Indication: HIV INFECTION
     Dosage: POST MCNS DIAGNOSIS
     Route: 065

REACTIONS (3)
  - Acute kidney injury [Unknown]
  - Pneumonia [Unknown]
  - Product use in unapproved indication [Unknown]
